FAERS Safety Report 10598202 (Version 1)
Quarter: 2014Q4

REPORT INFORMATION
  Report Type: Other
  Country: FR (occurrence: FR)
  Receive Date: 20141121
  Receipt Date: 20141121
  Transmission Date: 20150529
  Serious: Yes (Hospitalization, Disabling)
  Sender: FDA-Public Use
  Company Number: FR-TAKEDA-2014JNJ006185

PATIENT

DRUGS (3)
  1. ALKERAN [Suspect]
     Active Substance: MELPHALAN
     Indication: PLASMA CELL MYELOMA
     Dosage: UNK
     Route: 042
     Dates: start: 20140821
  2. PREDNISONE. [Concomitant]
     Active Substance: PREDNISONE
     Route: 065
  3. VELCADE [Suspect]
     Active Substance: BORTEZOMIB
     Indication: PLASMA CELL MYELOMA
     Dosage: 1.8 MG, PER CYCLE
     Route: 042
     Dates: start: 20140821, end: 20140925

REACTIONS (6)
  - Neurogenic bladder [Recovering/Resolving]
  - Malaise [Unknown]
  - Hypotension [Unknown]
  - Ataxia [Recovering/Resolving]
  - Walking disability [Recovering/Resolving]
  - Autonomic nervous system imbalance [Unknown]

NARRATIVE: CASE EVENT DATE: 20140925
